FAERS Safety Report 18274962 (Version 2)
Quarter: 2020Q4

REPORT INFORMATION
  Report Type: Spontaneous
  Country: ZA (occurrence: ZA)
  Receive Date: 20200916
  Receipt Date: 20201007
  Transmission Date: 20210113
  Serious: Yes (Other)
  Sender: FDA-Public Use
  Company Number: ZA-ELI_LILLY_AND_COMPANY-ZA202009002790

PATIENT
  Sex: Male

DRUGS (1)
  1. ZYPREXA [Suspect]
     Active Substance: OLANZAPINE
     Indication: PRODUCT USED FOR UNKNOWN INDICATION
     Dosage: 2.5 MG, UNKNOWN
     Route: 065

REACTIONS (7)
  - Central nervous system lesion [Unknown]
  - Hydrocephalus [Unknown]
  - Cerebral atrophy [Unknown]
  - Glioma [Unknown]
  - Hallucination [Unknown]
  - Cerebral ventricle dilatation [Unknown]
  - Oedema [Unknown]
